FAERS Safety Report 25544140 (Version 1)
Quarter: 2025Q3

REPORT INFORMATION
  Report Type: Spontaneous
  Country: US (occurrence: None)
  Receive Date: 20250710
  Receipt Date: 20250710
  Transmission Date: 20251021
  Serious: Yes (Disabling, Other)
  Sender: FDA-CTU
  Company Number: None

PATIENT
  Age: 43 Year
  Sex: Female
  Weight: 99 kg

DRUGS (5)
  1. TEQUIN [Suspect]
     Active Substance: GATIFLOXACIN
     Indication: Bronchitis
  2. TEQUIN [Suspect]
     Active Substance: GATIFLOXACIN
     Indication: Laryngitis
  3. TEQUIN [Suspect]
     Active Substance: GATIFLOXACIN
     Indication: Pharyngitis
  4. LEVAQUIN [Suspect]
     Active Substance: LEVOFLOXACIN
  5. CIPRO [Suspect]
     Active Substance: CIPROFLOXACIN HYDROCHLORIDE

REACTIONS (2)
  - Ligament rupture [None]
  - Connective tissue disorder [None]

NARRATIVE: CASE EVENT DATE: 19990102
